FAERS Safety Report 13347127 (Version 1)
Quarter: 2017Q1

REPORT INFORMATION
  Report Type: Spontaneous
  Country: US (occurrence: US)
  Receive Date: 20170317
  Receipt Date: 20170317
  Transmission Date: 20170428
  Serious: No
  Sender: FDA-Public Use
  Company Number: US-PFIZER INC-2017114380

PATIENT
  Age: 12 Year
  Sex: Female
  Weight: 24 kg

DRUGS (18)
  1. HCL PROBIOTIC [Concomitant]
     Dosage: UNK UNK, DAILY (1-2 TIMES)
  2. L GLUTAMINE [Concomitant]
     Active Substance: GLUTAMINE
     Dosage: 3000 MG, 1X/DAY
  3. GENOTROPIN MQ [Suspect]
     Active Substance: SOMATROPIN
     Indication: BLOOD GROWTH HORMONE
     Dosage: 1.2 MG, 6 DAYS PER WEEKS
     Dates: start: 2014
  4. GENOTROPIN MQ [Suspect]
     Active Substance: SOMATROPIN
     Dosage: UNK (4 DAYS A WEEK)
  5. FISH OIL [Concomitant]
     Active Substance: FISH OIL
  6. ASCORBIC ACID. [Concomitant]
     Active Substance: ASCORBIC ACID
     Dosage: 250 MG, 1X/DAY
  7. VITAMIN C [Concomitant]
     Active Substance: ASCORBIC ACID
     Dosage: UNK
  8. MULTIVITAMINS [Concomitant]
     Active Substance: VITAMINS
     Dosage: UNK
  9. GLYCINE IRRIGATION [Concomitant]
     Dosage: UNK
  10. OMEGA-3 ACIDS [Concomitant]
     Active Substance: OMEGA-3 FATTY ACIDS
     Dosage: UNK
  11. VITAMIN D [Concomitant]
     Active Substance: CHOLECALCIFEROL
  12. CHOLECALCIFEROL [Concomitant]
     Active Substance: CHOLECALCIFEROL
     Dosage: UNK UNK, 1X/DAY (3 DROPS ONCE DAILY)
  13. CALCIUM/MAGNESIUM [Concomitant]
     Dosage: UNK UNK, 1X/DAY
  14. ZINC. [Concomitant]
     Active Substance: ZINC
     Dosage: UNK
  15. SOY LECITHIN [Concomitant]
     Active Substance: LECITHIN, SOYBEAN
     Dosage: UNK
  16. GENOTROPIN MQ [Suspect]
     Active Substance: SOMATROPIN
     Dosage: 1 MG, UNK (6 DAYS A WEEK)
  17. GENOTROPIN MQ [Suspect]
     Active Substance: SOMATROPIN
     Dosage: 0.6 MG, UNK (6 DAYS PER WEEK)
     Route: 058
  18. PROBIOTIC [Concomitant]
     Active Substance: PROBIOTICS NOS
     Dosage: UNK

REACTIONS (9)
  - Headache [Unknown]
  - Decreased appetite [Recovering/Resolving]
  - Pain [Unknown]
  - Injection site pain [Unknown]
  - Intentional product misuse [Unknown]
  - Emotional disorder [Unknown]
  - Injection site erythema [Unknown]
  - Weight gain poor [Unknown]
  - Abdominal distension [Recovered/Resolved]
